FAERS Safety Report 16569388 (Version 2)
Quarter: 2021Q4

REPORT INFORMATION
  Report Type: Spontaneous
  Country: TH (occurrence: TH)
  Receive Date: 20190715
  Receipt Date: 20211020
  Transmission Date: 20220303
  Serious: Yes (Other)
  Sender: FDA-Public Use
  Company Number: TH-ROCHE-2353707

PATIENT
  Age: 54 Year
  Sex: Male

DRUGS (6)
  1. ATEZOLIZUMAB [Suspect]
     Active Substance: ATEZOLIZUMAB
     Indication: Non-small cell lung cancer
     Route: 042
     Dates: start: 20181205
  2. BEVACIZUMAB [Suspect]
     Active Substance: BEVACIZUMAB
     Indication: Non-small cell lung cancer
     Route: 042
     Dates: start: 20181205
  3. PACLITAXEL [Suspect]
     Active Substance: PACLITAXEL
     Indication: Non-small cell lung cancer
     Route: 042
     Dates: start: 20181205
  4. PACLITAXEL [Suspect]
     Active Substance: PACLITAXEL
     Dosage: DECREASED PACLITAXEL DOSE TO 80%
     Route: 042
  5. CARBOPLATIN [Suspect]
     Active Substance: CARBOPLATIN
     Indication: Non-small cell lung cancer
     Dosage: AUC 5
     Route: 042
     Dates: start: 20181205
  6. PEMETREXED [Suspect]
     Active Substance: PEMETREXED
     Indication: Product used for unknown indication
     Route: 065

REACTIONS (7)
  - Diarrhoea [Unknown]
  - Neutropenia [Unknown]
  - Myelosuppression [Unknown]
  - Metastases to lung [Unknown]
  - Drug ineffective [Unknown]
  - Therapy partial responder [Unknown]
  - Disease progression [Unknown]

NARRATIVE: CASE EVENT DATE: 20181213
